FAERS Safety Report 18691581 (Version 2)
Quarter: 2021Q1

REPORT INFORMATION
  Report Type: Spontaneous
  Country: JP (occurrence: JP)
  Receive Date: 20210101
  Receipt Date: 20210129
  Transmission Date: 20210419
  Serious: Yes (Death, Other)
  Sender: FDA-Public Use
  Company Number: JP-GLAXOSMITHKLINE-JP2020GSK259353

PATIENT
  Age: 73 Year
  Sex: Male

DRUGS (2)
  1. OMEGA?3?ACID ETHYL ESTERS. [Suspect]
     Active Substance: OMEGA-3-ACID ETHYL ESTERS
     Indication: HYPERLIPIDAEMIA
     Dosage: 2 G
     Route: 048
  2. IMURAN [Concomitant]
     Active Substance: AZATHIOPRINE
     Indication: PRODUCT USED FOR UNKNOWN INDICATION
     Dosage: UNK
     Dates: start: 20201204

REACTIONS (5)
  - Skin odour abnormal [Recovered/Resolved]
  - Condition aggravated [Unknown]
  - Diarrhoea [Unknown]
  - Breath odour [Unknown]
  - Autoimmune pancreatitis [Fatal]

NARRATIVE: CASE EVENT DATE: 20201202
